FAERS Safety Report 19211256 (Version 1)
Quarter: 2021Q2

REPORT INFORMATION
  Report Type: Spontaneous
  Country: CA (occurrence: CA)
  Receive Date: 20210501
  Receipt Date: 20210501
  Transmission Date: 20210717
  Serious: Yes (Hospitalization, Other)
  Sender: FDA-Public Use
  Company Number: CA-TILLOMEDPR-2021-EPL-001342

PATIENT
  Age: 47 Year
  Sex: Female

DRUGS (40)
  1. DIVALPROEX [Interacting]
     Active Substance: DIVALPROEX SODIUM
     Indication: MANIA
     Dosage: 250 MILLIGRAM PO IN THE MORNING
     Route: 048
  2. RISPERIDONE. [Suspect]
     Active Substance: RISPERIDONE
     Indication: AFFECTIVE DISORDER
     Dosage: 1 MILLIGRAM PO ONCE DAILY
     Route: 048
  3. METHADONE [Interacting]
     Active Substance: METHADONE HYDROCHLORIDE
     Dosage: 50 MILLIGRAM
  4. LORAZEPAM. [Interacting]
     Active Substance: LORAZEPAM
     Dosage: 1 IM DOSE OF LORAZEPAM 1 MG
  5. LORAZEPAM. [Interacting]
     Active Substance: LORAZEPAM
     Dosage: 7 MILLIGRAM
  6. DOXEPIN [Interacting]
     Active Substance: DOXEPIN
     Dosage: 50 MILLIGRAM
     Route: 048
  7. GABAPENTIN. [Interacting]
     Active Substance: GABAPENTIN
     Dosage: 400 MILLIGRAM, QID
  8. CYCLOBENZAPRINE. [Interacting]
     Active Substance: CYCLOBENZAPRINE
     Dosage: 10 MG 3 TIMES DAILY
     Route: 048
  9. DIVALPROEX [Interacting]
     Active Substance: DIVALPROEX SODIUM
     Indication: AFFECTIVE DISORDER
     Dosage: 500 MG PO AT BEDTIME
     Route: 048
  10. QUETIAPINE. [Interacting]
     Active Substance: QUETIAPINE
     Indication: MAJOR DEPRESSION
     Dosage: 100 MILLIGRAM EXTENDED?RELEASE PO AT BEDTIME DAILY
     Route: 048
  11. QUETIAPINE. [Interacting]
     Active Substance: QUETIAPINE
     Dosage: 25 TO 50 MG IMMEDIATE?RELEASE 4 TIMES DAILY AS NEEDED
  12. FLUOXETINE [Interacting]
     Active Substance: FLUOXETINE HYDROCHLORIDE
     Dosage: 60 MILLIGRAM
     Route: 048
  13. DOXEPIN [Interacting]
     Active Substance: DOXEPIN
     Indication: MAJOR DEPRESSION
     Dosage: 150 MG PO ONCE DAILY
     Route: 048
  14. GABAPENTIN. [Interacting]
     Active Substance: GABAPENTIN
     Indication: SCOLIOSIS
     Dosage: 600 MG PO TID
     Route: 048
  15. METHADONE [Interacting]
     Active Substance: METHADONE HYDROCHLORIDE
     Dosage: 60 MILLIGRAM
  16. CYCLOBENZAPRINE. [Interacting]
     Active Substance: CYCLOBENZAPRINE
     Indication: SCOLIOSIS
     Dosage: 10 MG PO TWICE A DAY
  17. LORAZEPAM. [Interacting]
     Active Substance: LORAZEPAM
     Dosage: 1 PO DOSE OF LORAZEPAM 1 MG
  18. FLUOXETINE [Interacting]
     Active Substance: FLUOXETINE HYDROCHLORIDE
     Dosage: 40 MILLIGRAM
     Route: 048
  19. DOXEPIN [Interacting]
     Active Substance: DOXEPIN
     Dosage: 100 MILLIGRAM
     Route: 048
  20. ATENOLOL. [Concomitant]
     Active Substance: ATENOLOL
     Indication: HYPERTENSION
     Dosage: 50 MG PO ONCE DAILY
     Route: 048
  21. FUROSEMIDE. [Concomitant]
     Active Substance: FUROSEMIDE
     Indication: OEDEMA PERIPHERAL
     Dosage: 40 MG PO ONCE DAILY PRN
     Route: 048
  22. METHADONE [Interacting]
     Active Substance: METHADONE HYDROCHLORIDE
     Indication: DRUG USE DISORDER
     Dosage: 30 MG PO ONCE DAILY TO BE TITRATED BY 10 MG EACH DAY UNTIL AT 60 MG DAILY
  23. NALOXONE [Concomitant]
     Active Substance: NALOXONE
     Dosage: 0.4 MILLIGRAM, AS NECESSARY
     Route: 030
  24. CLONIDINE. [Concomitant]
     Active Substance: CLONIDINE
     Indication: WITHDRAWAL SYNDROME
     Dosage: 0.1 MILLIGRAM
  25. TIOTROPIUM [Concomitant]
     Active Substance: TIOTROPIUM
     Indication: CHRONIC OBSTRUCTIVE PULMONARY DISEASE
     Dosage: 5 MCG INHALATIONS ONCE DAILY
  26. METHADONE [Interacting]
     Active Substance: METHADONE HYDROCHLORIDE
     Dosage: 75 MG PO ONCE DAILY
     Route: 048
  27. METHADONE [Interacting]
     Active Substance: METHADONE HYDROCHLORIDE
     Dosage: 40 MILLIGRAM
  28. LORAZEPAM. [Interacting]
     Active Substance: LORAZEPAM
     Indication: WITHDRAWAL SYNDROME
     Dosage: 1 TO 2 MG PO 4 TIMES DAILY
     Route: 048
  29. LORAZEPAM. [Interacting]
     Active Substance: LORAZEPAM
     Indication: ANXIETY
     Dosage: 3 DOSES OF 2 MILLIGRAM
  30. LORAZEPAM. [Interacting]
     Active Substance: LORAZEPAM
     Dosage: 1 AND 7 MG/D
  31. LORAZEPAM. [Interacting]
     Active Substance: LORAZEPAM
     Dosage: 6 MILLIGRAM
  32. NAPROXEN. [Concomitant]
     Active Substance: NAPROXEN
     Indication: SCOLIOSIS
     Dosage: 500 MG PO BID PRN
     Route: 048
  33. ESTRADIOL. [Concomitant]
     Active Substance: ESTRADIOL
     Indication: ENDOMETRIOSIS
     Dosage: 0.5 MG PO ONCE DAILY
     Route: 048
  34. FLUOXETINE [Interacting]
     Active Substance: FLUOXETINE HYDROCHLORIDE
     Indication: MAJOR DEPRESSION
     Dosage: 80 MG PO ONCE DAILY
     Route: 048
  35. LORAZEPAM. [Interacting]
     Active Substance: LORAZEPAM
     Dosage: 3 MILLIGRAM
  36. LORAZEPAM. [Interacting]
     Active Substance: LORAZEPAM
     Dosage: 4 MILLIGRAM
  37. LORAZEPAM. [Interacting]
     Active Substance: LORAZEPAM
     Dosage: 5 MILLIGRAM
  38. DIVALPROEX [Interacting]
     Active Substance: DIVALPROEX SODIUM
     Dosage: 750 MG PO AT NIGHT
  39. FLUOXETINE [Interacting]
     Active Substance: FLUOXETINE HYDROCHLORIDE
     Dosage: 20 MILLIGRAM
     Route: 048
  40. SALBUTAMOL [Concomitant]
     Active Substance: ALBUTEROL
     Indication: CHRONIC OBSTRUCTIVE PULMONARY DISEASE
     Dosage: 200 MCG INHALATIONS BID PRN

REACTIONS (5)
  - Depressed level of consciousness [Recovering/Resolving]
  - Toxicity to various agents [Recovering/Resolving]
  - Drug interaction [Recovering/Resolving]
  - Off label use [Unknown]
  - Respiratory depression [Recovering/Resolving]
